FAERS Safety Report 7102059-X (Version None)
Quarter: 2010Q4

REPORT INFORMATION
  Report Type: 
  Country: None (occurrence: None)
  Receive Date: 20101115
  Receipt Date: 20101103
  Transmission Date: 20110411
  Serious: Yes (Hospitalization)
  Sender: FDA-Public Use
  Company Number: IT-ROCHE-738649

PATIENT
  Sex: Female

DRUGS (2)
  1. VALIUM [Suspect]
     Route: 048
     Dates: start: 20101030, end: 20101031
  2. CIBALGINA [Concomitant]
     Route: 048
     Dates: start: 20101030, end: 20101031

REACTIONS (5)
  - DIPLOPIA [None]
  - HEADACHE [None]
  - NECK PAIN [None]
  - PARADOXICAL DRUG REACTION [None]
  - PSYCHOMOTOR HYPERACTIVITY [None]
